FAERS Safety Report 11973002 (Version 2)
Quarter: 2016Q2

REPORT INFORMATION
  Report Type: Report from Study
  Country: US (occurrence: US)
  Receive Date: 20160128
  Receipt Date: 20160421
  Transmission Date: 20160815
  Serious: No
  Sender: FDA-Public Use
  Company Number: US-AMGEN-USASL2016004007

PATIENT
  Age: 74 Year
  Sex: Male
  Weight: 81.18 kg

DRUGS (5)
  1. REPATHA [Suspect]
     Active Substance: EVOLOCUMAB
     Indication: DYSLIPIDAEMIA
     Dosage: 140 MG, Q2WK
     Route: 058
     Dates: start: 20151111
  2. MOTRIN [Concomitant]
     Active Substance: IBUPROFEN
     Dosage: 600 MG, Q6H
     Route: 048
  3. TOPROL XL [Concomitant]
     Active Substance: METOPROLOL SUCCINATE
     Dosage: 50 MG, QD
     Route: 048
  4. ASPIRIN                            /00002701/ [Concomitant]
     Active Substance: ASPIRIN
     Dosage: UNK UNK, QD
     Route: 048
  5. FLOMAX [Concomitant]
     Active Substance: TAMSULOSIN HYDROCHLORIDE
     Dosage: 0.4 MG, QD
     Route: 048

REACTIONS (11)
  - Musculoskeletal stiffness [Unknown]
  - Arthralgia [Recovered/Resolved]
  - Arthritis [Unknown]
  - Peripheral swelling [Not Recovered/Not Resolved]
  - Paraesthesia [Unknown]
  - Dyspnoea [Recovered/Resolved]
  - Pain in extremity [Not Recovered/Not Resolved]
  - Fatigue [Recovered/Resolved]
  - Myalgia [Recovered/Resolved]
  - Musculoskeletal pain [Recovered/Resolved]
  - Joint swelling [Not Recovered/Not Resolved]

NARRATIVE: CASE EVENT DATE: 201512
